FAERS Safety Report 17238135 (Version 1)
Quarter: 2020Q1

REPORT INFORMATION
  Report Type: Spontaneous
  Country: US (occurrence: US)
  Receive Date: 20200106
  Receipt Date: 20200106
  Transmission Date: 20200409
  Serious: No
  Sender: FDA-Public Use
  Company Number: US-PACIRA-201900321

PATIENT
  Age: 43 Year
  Sex: Female
  Weight: 73 kg

DRUGS (2)
  1. EXPAREL [Suspect]
     Active Substance: BUPIVACAINE
     Indication: INGUINAL HERNIA REPAIR
     Dosage: 266 MG, 20 ML ADMIXTURE WITH 20 ML MARCAINE 0.5%
     Dates: start: 20190913, end: 20190913
  2. MARCAINE [Concomitant]
     Active Substance: BUPIVACAINE HYDROCHLORIDE
     Indication: INGUINAL HERNIA REPAIR
     Dosage: 20 ML MARCAINE 0.5% ADMIXED WITH EXPAREL 266 MG, 20 ML
     Dates: start: 20190913, end: 20190913

REACTIONS (1)
  - Hypoaesthesia [Recovered/Resolved]

NARRATIVE: CASE EVENT DATE: 20190913
